FAERS Safety Report 5976269-9 (Version None)
Quarter: 2008Q4

REPORT INFORMATION
  Report Type: 
  Country: None (occurrence: None)
  Receive Date: 20081202
  Receipt Date: 20081127
  Transmission Date: 20090506
  Serious: Yes (Hospitalization, Other)
  Sender: FDA-Public Use
  Company Number: DK-ASTRAZENECA-2006SE02104

PATIENT
  Age: 27598 Day
  Sex: Male

DRUGS (19)
  1. PULMICORT-100 [Suspect]
     Indication: ASTHMA
     Route: 055
     Dates: start: 20060406
  2. VENTOLIN [Suspect]
     Indication: ASTHMA
     Route: 055
     Dates: start: 20060405, end: 20060406
  3. ATROVENT [Suspect]
     Indication: ASTHMA
     Route: 055
     Dates: start: 20060405
  4. PLACEBO [Suspect]
     Indication: RENAL FAILURE CHRONIC
     Route: 048
     Dates: start: 20040824
  5. OSTERSKALLER [Concomitant]
     Indication: BLOOD PHOSPHORUS DECREASED
     Route: 048
     Dates: start: 20040406
  6. B-KOMBIN F [Concomitant]
     Indication: VITAMIN SUPPLEMENTATION
     Route: 048
     Dates: start: 20040406
  7. C-VIT [Concomitant]
     Indication: VITAMIN SUPPLEMENTATION
     Route: 048
     Dates: start: 20040406
  8. FOLIC ACID [Concomitant]
     Indication: VITAMIN SUPPLEMENTATION
     Route: 048
     Dates: start: 20040406
  9. NEXIUM [Concomitant]
     Indication: GASTRITIS
     Route: 048
     Dates: start: 20040406
  10. FURIX [Concomitant]
     Indication: DIURETIC THERAPY
     Route: 048
     Dates: start: 20040504
  11. VENOFER [Concomitant]
     Indication: IRON DEFICIENCY
     Route: 042
     Dates: start: 20040604, end: 20050414
  12. VENOFER [Concomitant]
     Route: 042
     Dates: start: 20051124
  13. INNOHEP [Concomitant]
     Indication: ANTICOAGULANT THERAPY
     Route: 042
     Dates: start: 20040604
  14. PROSCAR [Concomitant]
     Indication: BENIGN PROSTATIC HYPERPLASIA
     Route: 048
     Dates: start: 20040925
  15. HYDROCORTISON TERRAMYCIN POLYMYXIN [Concomitant]
     Indication: EYE INFECTION
     Route: 047
     Dates: start: 20040515
  16. HEPARIN [Concomitant]
     Indication: ANTICOAGULANT THERAPY
     Route: 042
     Dates: start: 20050706
  17. ARANESP [Concomitant]
     Indication: NEPHROGENIC ANAEMIA
     Route: 042
     Dates: start: 20050818
  18. BRICANYL [Concomitant]
     Indication: CREPITATIONS
     Route: 055
     Dates: start: 20060221
  19. ETALPHA [Concomitant]
     Indication: HYPERPARATHYROIDISM
     Route: 048
     Dates: start: 20060316

REACTIONS (2)
  - ASTHMA [None]
  - ATRIAL FIBRILLATION [None]
